FAERS Safety Report 16163047 (Version 3)
Quarter: 2019Q2

REPORT INFORMATION
  Report Type: Spontaneous
  Country: US (occurrence: US)
  Receive Date: 20190405
  Receipt Date: 20190607
  Transmission Date: 20190711
  Serious: Yes (Hospitalization)
  Sender: FDA-Public Use
  Company Number: US-VERTEX PHARMACEUTICALS-2019-002807

PATIENT
  Age: 57 Year
  Sex: Female

DRUGS (6)
  1. ONE A DAY                          /02262701/ [Concomitant]
     Active Substance: VITAMINS
  2. PULMOZYME [Concomitant]
     Active Substance: DORNASE ALFA
  3. TOBRAMYCIN. [Concomitant]
     Active Substance: TOBRAMYCIN
  4. HUMALOG [Concomitant]
     Active Substance: INSULIN LISPRO
  5. LISINOPRIL. [Concomitant]
     Active Substance: LISINOPRIL
  6. ORKAMBI [Suspect]
     Active Substance: IVACAFTOR\LUMACAFTOR
     Indication: CYSTIC FIBROSIS
     Dosage: 2 DOSAGE FORM (200-125 MG TABLETS), BID
     Route: 048
     Dates: start: 20170803

REACTIONS (2)
  - Breast cancer [Not Recovered/Not Resolved]
  - Vasectomy [Not Recovered/Not Resolved]

NARRATIVE: CASE EVENT DATE: 20190315
